FAERS Safety Report 6471201-6 (Version None)
Quarter: 2009Q4

REPORT INFORMATION
  Report Type: 
  Country: None (occurrence: None)
  Receive Date: 20091203
  Receipt Date: 20080515
  Transmission Date: 20100525
  Serious: Yes (Hospitalization, Other)
  Sender: FDA-Public Use
  Company Number: US-ELI_LILLY_AND_COMPANY-US200802000936

PATIENT
  Sex: Female

DRUGS (11)
  1. CYMBALTA [Suspect]
     Indication: NEUROPATHY PERIPHERAL
     Dosage: 60 MG, DAILY (1/D)
     Dates: start: 20071203, end: 20080128
  2. CYMBALTA [Suspect]
     Dosage: 30 MG, UNK
     Dates: start: 20080128, end: 20080206
  3. SIMVASTATIN [Concomitant]
  4. AMBIEN [Concomitant]
  5. TRIAMTERENE AND HYDROCHLOROTHIAZIDE [Concomitant]
  6. ENALAPRIL [Concomitant]
     Dosage: 5 MG, UNK
  7. POTASSIUM [Concomitant]
     Dosage: 20 MEQ, UNK
  8. RANITIDINE [Concomitant]
  9. ASPIRIN [Concomitant]
     Dosage: 81 MG, UNK
  10. PAXIL [Concomitant]
  11. ACTOS [Concomitant]

REACTIONS (35)
  - AMNESIA [None]
  - APPETITE DISORDER [None]
  - ASTHENIA [None]
  - BLOOD PRESSURE INCREASED [None]
  - CHILLS [None]
  - CONFUSIONAL STATE [None]
  - COORDINATION ABNORMAL [None]
  - CRYING [None]
  - DEHYDRATION [None]
  - DIARRHOEA [None]
  - DISORIENTATION [None]
  - DYSKINESIA [None]
  - DYSPHONIA [None]
  - DYSPNOEA [None]
  - FEELING ABNORMAL [None]
  - GOUT [None]
  - HEADACHE [None]
  - HYPOAESTHESIA FACIAL [None]
  - HYPOTONIA [None]
  - INSOMNIA [None]
  - IRRITABILITY [None]
  - LOSS OF CONSCIOUSNESS [None]
  - MENTAL IMPAIRMENT [None]
  - MOOD SWINGS [None]
  - MUSCLE TIGHTNESS [None]
  - MUSCLE TWITCHING [None]
  - NAUSEA [None]
  - NIGHTMARE [None]
  - PAIN [None]
  - PANIC REACTION [None]
  - PRESYNCOPE [None]
  - RESTLESSNESS [None]
  - SEROTONIN SYNDROME [None]
  - TREMOR [None]
  - VOMITING [None]
